FAERS Safety Report 16349689 (Version 3)
Quarter: 2019Q2

REPORT INFORMATION
  Report Type: Spontaneous
  Country: FR (occurrence: FR)
  Receive Date: 20190523
  Receipt Date: 20190621
  Transmission Date: 20190711
  Serious: Yes (Other)
  Sender: FDA-Public Use
  Company Number: FR-ASCEND THERAPEUTICS-2067385

PATIENT
  Age: 51 Year
  Sex: Female

DRUGS (10)
  1. LUTERAN (CHLORMADINONE ACETATE)?INDICATION FOR USE: POLYCYSTIC OVARIAN [Suspect]
     Active Substance: CHLORMADINONE ACETATE
     Route: 048
     Dates: start: 199910, end: 200505
  2. ANDROCUR (CYPROTERONE ACETATE)?INDICATION FOR USE: POLYCYSTIC OVARIAN [Suspect]
     Active Substance: CYPROTERONE ACETATE
     Route: 048
     Dates: start: 199206
  3. ANDROCUR (CYPROTERONE ACETATE) FOR POLYCYSTIC OVARIAN SYNDROME. [Suspect]
     Active Substance: CYPROTERONE ACETATE
     Route: 048
     Dates: start: 1998
  4. DIANE (CYPROTERONE ACETATE\ETHINYL ESTRADIOL) [Suspect]
     Active Substance: CYPROTERONE ACETATE\ETHINYL ESTRADIOL
     Route: 048
     Dates: start: 199903, end: 199910
  5. UTROGESTAN [Suspect]
     Active Substance: PROGESTERONE
     Route: 048
     Dates: start: 201809, end: 201903
  6. DIANE (CYPROTERONE ACETATE\ETHINYL ESTRADIOL) [Suspect]
     Active Substance: CYPROTERONE ACETATE\ETHINYL ESTRADIOL
     Route: 048
     Dates: start: 1992
  7. ESTROGEL [Suspect]
     Active Substance: ESTRADIOL
     Indication: POLYCYSTIC OVARIES
     Route: 062
     Dates: start: 201809, end: 201903
  8. CLOMID [Suspect]
     Active Substance: CLOMIPHENE CITRATE
     Route: 048
     Dates: start: 1993, end: 1997
  9. ANDROCUR (CYPROTERONE ACETATE) [Suspect]
     Active Substance: CYPROTERONE ACETATE
     Route: 048
     Dates: start: 200605, end: 201808
  10. VARNOLINE (ETHINYLESTRADIOL, DESOGESTREL) FOR POLYCYSTIC OVARIAN SYNDR [Suspect]
     Active Substance: DESOGESTREL\ETHINYL ESTRADIOL
     Route: 048
     Dates: start: 199206, end: 199903

REACTIONS (1)
  - Meningioma [Not Recovered/Not Resolved]
